FAERS Safety Report 13260675 (Version 1)
Quarter: 2017Q1

REPORT INFORMATION
  Report Type: Spontaneous
  Country: US (occurrence: US)
  Receive Date: 20170222
  Receipt Date: 20170222
  Transmission Date: 20170428
  Serious: Yes (Other)
  Sender: FDA-Public Use
  Company Number: US-TEVA-740879USA

PATIENT
  Age: 83 Year
  Sex: Male

DRUGS (1)
  1. PROAIR HFA [Suspect]
     Active Substance: ALBUTEROL SULFATE
     Indication: BRONCHOSPASM
     Dates: start: 20161225, end: 20161225

REACTIONS (4)
  - Wheezing [Unknown]
  - Lower respiratory tract infection [Unknown]
  - General physical health deterioration [Not Recovered/Not Resolved]
  - Cough [Unknown]
